FAERS Safety Report 9699756 (Version 1)
Quarter: 2013Q4

REPORT INFORMATION
  Report Type: Spontaneous
  Country: US (occurrence: US)
  Receive Date: 20131120
  Receipt Date: 20131120
  Transmission Date: 20140711
  Serious: Yes (Other)
  Sender: FDA-Public Use
  Company Number: US-TEVA-373036USA

PATIENT
  Age: 25 Year
  Sex: Female
  Weight: 70.82 kg

DRUGS (1)
  1. PARAGARD 380A [Suspect]
     Indication: CONTRACEPTION
     Route: 015
     Dates: start: 200903, end: 20121126

REACTIONS (4)
  - Embedded device [Recovered/Resolved]
  - Ovarian cyst [Not Recovered/Not Resolved]
  - Dyspareunia [Unknown]
  - Discomfort [Recovered/Resolved]
